FAERS Safety Report 5989932-0 (Version None)
Quarter: 2008Q4

REPORT INFORMATION
  Report Type: 
  Country: None (occurrence: None)
  Receive Date: 20081211
  Receipt Date: 20081202
  Transmission Date: 20090506
  Serious: Yes (Hospitalization)
  Sender: FDA-Public Use
  Company Number: GB-RANBAXY-2008RR-19706

PATIENT
  Age: 34 Year
  Sex: Male

DRUGS (5)
  1. CLARITHROMYCIN [Suspect]
     Indication: BACTERIAL INFECTION
     Route: 065
  2. MINOCYCLINE HCL [Suspect]
     Indication: BACTERIAL INFECTION
     Route: 065
  3. OMEPRAZOLE [Suspect]
     Indication: GASTROOESOPHAGEAL REFLUX DISEASE
     Route: 065
  4. TOBRAMYCINE [Suspect]
     Indication: BACTERIAL INFECTION
     Route: 065
  5. INTERFERON GAMMA [Concomitant]
     Route: 065

REACTIONS (7)
  - ABDOMINAL PAIN [None]
  - CLOSTRIDIUM DIFFICILE COLITIS [None]
  - DEHYDRATION [None]
  - HYPOTENSION [None]
  - NAUSEA [None]
  - PYREXIA [None]
  - TACHYCARDIA [None]
